FAERS Safety Report 13846707 (Version 1)
Quarter: 2017Q3

REPORT INFORMATION
  Report Type: Spontaneous
  Country: IT (occurrence: IT)
  Receive Date: 20170808
  Receipt Date: 20170808
  Transmission Date: 20171127
  Serious: Yes (Death, Other)
  Sender: FDA-Public Use
  Company Number: IT-CELGENEUS-ITA-20170708193

PATIENT

DRUGS (1)
  1. AZACITIDINE. [Suspect]
     Active Substance: AZACITIDINE
     Indication: CHRONIC MYELOMONOCYTIC LEUKAEMIA
     Dosage: 75 MILLIGRAM/SQ. METER
     Route: 065

REACTIONS (5)
  - Chronic myelomonocytic leukaemia [Unknown]
  - Condition aggravated [Unknown]
  - Therapy non-responder [Unknown]
  - Transformation to acute myeloid leukaemia [Unknown]
  - Death [Fatal]
